FAERS Safety Report 4727526-5 (Version None)
Quarter: 2005Q3

REPORT INFORMATION
  Report Type: 
  Country: None (occurrence: None)
  Receive Date: 20050728
  Receipt Date: 20050622
  Transmission Date: 20060218
  Serious: Yes (Other)
  Sender: FDA-Public Use
  Company Number: US-NOVOPROD-244997

PATIENT
  Age: 54 Year
  Sex: Female
  Weight: 52 kg

DRUGS (2)
  1. ACTIVELLA [Suspect]
     Indication: MENOPAUSAL SYMPTOMS
     Dosage: 1 TAB, QD
     Route: 048
     Dates: start: 20050201
  2. MULTI-VITAMINS [Concomitant]
     Indication: PROPHYLAXIS
     Dosage: UNK, UNK

REACTIONS (1)
  - TINEA INFECTION [None]
